FAERS Safety Report 18076869 (Version 1)
Quarter: 2020Q3

REPORT INFORMATION
  Report Type: Spontaneous
  Country: JP (occurrence: JP)
  Receive Date: 20200727
  Receipt Date: 20200727
  Transmission Date: 20201103
  Serious: Yes (Hospitalization)
  Sender: FDA-Public Use
  Company Number: JP-JNJFOC-20200227445

PATIENT
  Age: 76 Year
  Sex: Female

DRUGS (3)
  1. EVENITY [Concomitant]
     Active Substance: ROMOSOZUMAB-AQQG
     Indication: BONE DENSITY ABNORMAL
     Dosage: UNKNOWN
     Route: 058
     Dates: start: 20191213
  2. PREDONINE [Suspect]
     Active Substance: PREDNISOLONE
     Indication: RHEUMATOID ARTHRITIS
     Dosage: PERORAL MEDICINE
     Route: 048
  3. SIMPONI [Suspect]
     Active Substance: GOLIMUMAB
     Indication: RHEUMATOID ARTHRITIS
     Route: 058

REACTIONS (1)
  - Spinal compression fracture [Recovered/Resolved]

NARRATIVE: CASE EVENT DATE: 20191204
